FAERS Safety Report 9099895 (Version 1)
Quarter: 2013Q1

REPORT INFORMATION
  Report Type: Spontaneous
  Country: US (occurrence: US)
  Receive Date: 20130214
  Receipt Date: 20130214
  Transmission Date: 20140127
  Serious: Yes (Hospitalization)
  Sender: FDA-Public Use
  Company Number: US-ASTRAZENECA-2013SE08956

PATIENT
  Age: 89 Year
  Sex: Female
  Weight: 56.7 kg

DRUGS (6)
  1. NEXIUM [Suspect]
     Indication: GASTROOESOPHAGEAL REFLUX DISEASE
     Route: 048
     Dates: start: 2010
  2. PREVACID [Suspect]
     Indication: GASTROOESOPHAGEAL REFLUX DISEASE
     Route: 048
     Dates: start: 2009, end: 2009
  3. GENERIC ZOCOR [Concomitant]
  4. BABY ASPIRIN [Concomitant]
  5. MULTIVITAMIN [Concomitant]
  6. SYNTHROID [Concomitant]

REACTIONS (5)
  - Fall [Unknown]
  - Hip fracture [Unknown]
  - Vomiting [Recovered/Resolved]
  - Nausea [Recovered/Resolved]
  - Wrong drug administered [Unknown]
